FAERS Safety Report 8949164 (Version 2)
Quarter: 2013Q2

REPORT INFORMATION
  Report Type: Report from Study
  Country: GB (occurrence: GB)
  Receive Date: 20121206
  Receipt Date: 20130517
  Transmission Date: 20140414
  Serious: Yes (Other)
  Sender: FDA-Public Use
  Company Number: GB-ASTRAZENECA-2012SE90306

PATIENT
  Age: 27587 Day
  Sex: Male

DRUGS (18)
  1. AZD6140 [Suspect]
     Indication: CORONARY ARTERY DISEASE
     Route: 048
     Dates: start: 20111121, end: 20121127
  2. PERINDOPRIL [Concomitant]
     Indication: HYPERTENSION
     Route: 048
  3. SPIRONOLACTONE [Concomitant]
     Indication: LEFT VENTRICULAR HYPERTROPHY
     Route: 048
  4. PARACETAMOL [Concomitant]
     Indication: OSTEOARTHRITIS
     Route: 048
  5. DIHYDROCODEINE [Concomitant]
     Indication: OSTEOARTHRITIS
     Route: 048
  6. BRICANYL INHALER [Concomitant]
     Indication: ASTHMA EXERCISE INDUCED
     Route: 055
  7. LANSOPRAZOLE [Concomitant]
     Indication: GASTRITIS PROPHYLAXIS
     Route: 048
  8. TEMAZEPAM [Concomitant]
     Indication: INSOMNIA
     Route: 048
  9. ROSUVASTATIN [Concomitant]
     Indication: HYPERCHOLESTEROLAEMIA
     Route: 048
  10. FUROSEMIDE [Concomitant]
     Indication: LEFT VENTRICULAR HYPERTROPHY
     Route: 048
  11. LACTULOSE [Concomitant]
     Indication: CONSTIPATION PROPHYLAXIS
     Route: 048
  12. PREGABALIN [Concomitant]
     Indication: OPHTHALMIC HERPES ZOSTER
     Route: 048
  13. PULMICORT TURBUHALER [Concomitant]
     Indication: ASTHMA EXERCISE INDUCED
     Route: 055
  14. BISOPROLOL [Concomitant]
     Indication: CARDIOVASCULAR EVENT PROPHYLAXIS
     Route: 048
  15. KOLANTICON [Concomitant]
     Indication: GASTROINTESTINAL DISORDER
     Route: 048
     Dates: start: 20120827
  16. ASA [Concomitant]
     Route: 048
  17. OPTIVE [Concomitant]
     Indication: EYE INFLAMMATION
     Route: 031
     Dates: start: 20120312
  18. MAXIDEX [Concomitant]
     Indication: EYE INFLAMMATION
     Route: 031
     Dates: start: 20120813, end: 20130304

REACTIONS (1)
  - Renal impairment [Not Recovered/Not Resolved]
